FAERS Safety Report 23460007 (Version 3)
Quarter: 2024Q1

REPORT INFORMATION
  Report Type: Spontaneous
  Country: DE (occurrence: None)
  Receive Date: 20240131
  Receipt Date: 20240223
  Transmission Date: 20240410
  Serious: Yes (Disabling, Other)
  Sender: FDA-Public Use
  Company Number: DE-ROCHE-3497119

PATIENT
  Sex: Male
  Weight: 101 kg

DRUGS (7)
  1. TOCILIZUMAB [Suspect]
     Active Substance: TOCILIZUMAB
     Indication: Encephalitis
     Route: 042
     Dates: start: 2016
  2. TOCILIZUMAB [Suspect]
     Active Substance: TOCILIZUMAB
     Indication: Encephalomyelitis
  3. TOCILIZUMAB [Suspect]
     Active Substance: TOCILIZUMAB
     Indication: Encephalitis
     Route: 058
  4. TOCILIZUMAB [Suspect]
     Active Substance: TOCILIZUMAB
     Indication: Encephalomyelitis
  5. RITUXIMAB [Suspect]
     Active Substance: RITUXIMAB
     Indication: Product used for unknown indication
     Route: 065
     Dates: start: 2014, end: 2015
  6. AMLODIPIN HEXAL [Concomitant]
     Route: 048
  7. NICOTINE [Concomitant]
     Active Substance: NICOTINE

REACTIONS (5)
  - Myelitis [Unknown]
  - Treatment failure [Unknown]
  - Myelitis transverse [Recovered/Resolved with Sequelae]
  - Albumin CSF increased [Unknown]
  - Off label use [Unknown]

NARRATIVE: CASE EVENT DATE: 20231211
